FAERS Safety Report 18098127 (Version 1)
Quarter: 2020Q3

REPORT INFORMATION
  Report Type: Report from Study
  Country: MY (occurrence: MY)
  Receive Date: 20200731
  Receipt Date: 20200731
  Transmission Date: 20201103
  Serious: Yes (Hospitalization)
  Sender: FDA-Public Use
  Company Number: MY-PFIZER INC-2020286085

PATIENT
  Age: 64 Year
  Sex: Male

DRUGS (10)
  1. PLATINUM CTX (CARBOPLATIN) [Suspect]
     Active Substance: CARBOPLATIN
  2. PIRITON [Concomitant]
     Active Substance: CHLORPHENIRAMINE MALEATE
     Indication: SEIZURE
     Dosage: UNK
     Route: 042
     Dates: start: 20190924
  3. PLACEBO [Suspect]
     Active Substance: UNSPECIFIED INGREDIENT
  4. ACZ885 [Suspect]
     Active Substance: CANAKINUMAB
     Indication: NON-SMALL CELL LUNG CANCER
     Dosage: NO TREATMENT
     Route: 065
  5. PEMBROLIZUMAB. [Suspect]
     Active Substance: PEMBROLIZUMAB
  6. DECAN [DEXAMETHASONE] [Concomitant]
     Dosage: UNK
     Dates: start: 20190604
  7. DILANTIN [Suspect]
     Active Substance: PHENYTOIN
     Dosage: UNK
     Route: 065
  8. DEXAMETHASONE. [Concomitant]
     Active Substance: DEXAMETHASONE
     Dosage: UNK
     Dates: start: 20190604
  9. PLATINUM CTX (CISPLATIN) [Suspect]
     Active Substance: CISPLATIN
  10. PHENYTOIN. [Concomitant]
     Active Substance: PHENYTOIN
     Dosage: UNK
     Dates: start: 20190904

REACTIONS (1)
  - Seizure [Recovered/Resolved]

NARRATIVE: CASE EVENT DATE: 20190924
